FAERS Safety Report 22074508 (Version 1)
Quarter: 2023Q1

REPORT INFORMATION
  Report Type: Report from Study
  Country: JP (occurrence: JP)
  Receive Date: 20230308
  Receipt Date: 20230308
  Transmission Date: 20230418
  Serious: Yes (Hospitalization, Other)
  Sender: FDA-Public Use
  Company Number: JP-ONO-2022JP006110

PATIENT
  Age: 79 Year
  Sex: Female
  Weight: 53.9 kg

DRUGS (23)
  1. NIVOLUMAB [Suspect]
     Active Substance: NIVOLUMAB
     Indication: Colon cancer
     Dosage: 360 MILLIGRAM, Q3WK
     Route: 041
     Dates: start: 20220224
  2. NIVOLUMAB [Suspect]
     Active Substance: NIVOLUMAB
     Route: 041
     Dates: start: 20221226
  3. BMS-986310 [Suspect]
     Active Substance: BMS-986310
     Indication: Colon cancer
     Dosage: EVERYDAY
     Route: 048
     Dates: start: 20220224
  4. BMS-986310 [Suspect]
     Active Substance: BMS-986310
     Dosage: EVERYDAY
     Route: 048
     Dates: end: 20220724
  5. OXALIPLATIN [Suspect]
     Active Substance: OXALIPLATIN
     Indication: Colon cancer
     Route: 042
     Dates: start: 20220224, end: 20221128
  6. OXALIPLATIN [Suspect]
     Active Substance: OXALIPLATIN
  7. CAPECITABINE [Suspect]
     Active Substance: CAPECITABINE
     Indication: Colon cancer
     Route: 048
     Dates: start: 20220224, end: 20220301
  8. CAPECITABINE [Suspect]
     Active Substance: CAPECITABINE
     Route: 048
     Dates: end: 20221201
  9. CAPECITABINE [Suspect]
     Active Substance: CAPECITABINE
     Route: 048
     Dates: end: 20221222
  10. BEVACIZUMAB [Suspect]
     Active Substance: BEVACIZUMAB
     Indication: Colon cancer
     Route: 042
     Dates: start: 20220224, end: 20221128
  11. BEVACIZUMAB [Suspect]
     Active Substance: BEVACIZUMAB
  12. DOMPERIDONE [Concomitant]
     Active Substance: DOMPERIDONE
     Indication: Nausea
     Dosage: 10 MG, PRN
     Route: 048
     Dates: start: 20220226
  13. DOMPERIDONE [Concomitant]
     Active Substance: DOMPERIDONE
  14. SODIUM GUALENATE MONOHYDRATE [Concomitant]
     Active Substance: SODIUM GUALENATE MONOHYDRATE
     Indication: Stomatitis
     Dosage: ADEQUATE DOSE, PRN
     Route: 002
     Dates: start: 20220317
  15. VONOPRAZAN FUMARATE [Concomitant]
     Active Substance: VONOPRAZAN FUMARATE
     Indication: Prophylaxis against gastrointestinal ulcer
     Dosage: 20 MG
     Route: 048
     Dates: start: 20220316
  16. VONOPRAZAN FUMARATE [Concomitant]
     Active Substance: VONOPRAZAN FUMARATE
     Dosage: 20 MG
     Route: 048
     Dates: start: 20220323
  17. GLYCOSAMINOGLYCANS [Concomitant]
     Active Substance: GLYCOSAMINOGLYCANS
     Indication: Skin disorder prophylaxis
     Dosage: ADEQUATE DOSE, PRN
     Route: 061
     Dates: start: 20220330
  18. MAGNESIUM OXIDE [Concomitant]
     Active Substance: MAGNESIUM OXIDE
     Indication: Constipation
     Dosage: PRN
     Route: 048
     Dates: start: 20221117
  19. CYTOTEC [Concomitant]
     Active Substance: MISOPROSTOL
     Indication: Gastric ulcer
     Route: 048
     Dates: start: 20221219
  20. ALLOID G [Concomitant]
     Active Substance: SODIUM ALGINATE
     Indication: Gastric ulcer
     Route: 048
     Dates: start: 20220801
  21. BISMUTH SUBSALICYLATE [Concomitant]
     Active Substance: BISMUTH SUBSALICYLATE
     Indication: Gastric ulcer
     Dosage: GRANULE, FOR SUSPENSION
     Route: 048
     Dates: start: 20220801
  22. ROKUMIGANRYO [Concomitant]
     Indication: Neuropathy peripheral
     Route: 048
     Dates: start: 20221128
  23. HERBALS [Concomitant]
     Active Substance: HERBALS
     Indication: Neuropathy peripheral
     Dosage: GRAIN
     Route: 048
     Dates: start: 20221128

REACTIONS (5)
  - Nausea [Recovered/Resolved]
  - Anaemia [Recovered/Resolved]
  - Gastrointestinal perforation [Recovering/Resolving]
  - Renal impairment [Not Recovered/Not Resolved]
  - Immune-mediated enterocolitis [Recovering/Resolving]

NARRATIVE: CASE EVENT DATE: 20220301
